FAERS Safety Report 5651005-4 (Version None)
Quarter: 2008Q1

REPORT INFORMATION
  Report Type: 
  Country: None (occurrence: None)
  Receive Date: 20080305
  Receipt Date: 20080225
  Transmission Date: 20080703
  Serious: Yes (Death)
  Sender: FDA-Public Use
  Company Number: US-GENENTECH-256621

PATIENT
  Age: 56 Year
  Sex: Male

DRUGS (14)
  1. RITUXAN [Suspect]
     Indication: B-CELL LYMPHOMA
     Dosage: 375 MG/M2, UNK
     Route: 042
  2. INTERFERON ALFA [Suspect]
     Indication: B-CELL LYMPHOMA
  3. MITOXANTRONE [Suspect]
     Indication: B-CELL LYMPHOMA
     Dosage: 10 MG/M2, UNK
     Route: 042
  4. DEXAMETHASONE TAB [Suspect]
     Indication: B-CELL LYMPHOMA
     Dosage: 40 MG, UNK
     Route: 048
  5. CYCLOPHOSPHAMIDE [Suspect]
     Indication: B-CELL LYMPHOMA
  6. DOXORUBICIN HCL [Suspect]
     Indication: B-CELL LYMPHOMA
  7. VINCRISTINE [Suspect]
     Indication: B-CELL LYMPHOMA
  8. PREDNISONE TAB [Suspect]
     Indication: B-CELL LYMPHOMA
  9. BLEOMYCIN [Suspect]
     Indication: B-CELL LYMPHOMA
  10. ETOPOSIDE [Suspect]
     Indication: B-CELL LYMPHOMA
  11. METHYLPREDNISOLONE [Suspect]
     Indication: B-CELL LYMPHOMA
  12. CYTARABINE [Suspect]
     Indication: B-CELL LYMPHOMA
  13. CISPLATIN [Suspect]
     Indication: B-CELL LYMPHOMA
  14. PROCARBAZINE [Suspect]
     Indication: B-CELL LYMPHOMA

REACTIONS (1)
  - MYELODYSPLASTIC SYNDROME [None]
